FAERS Safety Report 4959094-7 (Version None)
Quarter: 2006Q1

REPORT INFORMATION
  Report Type: 
  Country: None (occurrence: None)
  Receive Date: 20060330
  Receipt Date: 20060330
  Transmission Date: 20060701
  Serious: Yes (Death, Hospitalization)
  Sender: FDA-Public Use
  Company Number: None

PATIENT
  Age: 52 Year
  Sex: Male
  Weight: 86.1834 kg

DRUGS (2)
  1. CAMPATH [Suspect]
     Indication: T-CELL PROLYMPHOCYTIC LEUKAEMIA
     Dosage: CAMPATH 3MG - 10MG - 30MG M-W-F X1 WEEK IV DRIP
     Route: 041
     Dates: start: 20050915, end: 20051003
  2. CAMPATH [Suspect]
     Dosage: CAMPATH 30MG  M-W-F X1 WEEK IV DRIP
     Route: 041

REACTIONS (15)
  - AGGRESSION [None]
  - CEREBRAL HAEMORRHAGE [None]
  - CONFUSIONAL STATE [None]
  - DEHYDRATION [None]
  - DEPRESSED LEVEL OF CONSCIOUSNESS [None]
  - DIFFICULTY IN WALKING [None]
  - DISORIENTATION [None]
  - HYPERTENSION [None]
  - LETHARGY [None]
  - LISTLESS [None]
  - MUSCULAR WEAKNESS [None]
  - NAUSEA [None]
  - SOMNOLENCE [None]
  - SPEECH DISORDER [None]
  - VOMITING [None]
